FAERS Safety Report 9984221 (Version 2)
Quarter: 2014Q1

REPORT INFORMATION
  Report Type: Report from Study
  Country: US (occurrence: US)
  Receive Date: 20140307
  Receipt Date: 20140307
  Transmission Date: 20141002
  Serious: No
  Sender: FDA-Public Use
  Company Number: US-ABBVIE-13P-163-1179336-00

PATIENT
  Age: 42 Year
  Sex: Male
  Weight: 88.53 kg

DRUGS (2)
  1. HUMIRA [Suspect]
     Indication: PSORIATIC ARTHROPATHY
     Route: 058
     Dates: start: 201108, end: 20131115
  2. ZOLOFT [Concomitant]
     Indication: ANXIETY
     Dates: start: 2006

REACTIONS (1)
  - Laceration [Not Recovered/Not Resolved]
